FAERS Safety Report 18031859 (Version 1)
Quarter: 2020Q3

REPORT INFORMATION
  Report Type: Spontaneous
  Country: ES (occurrence: ES)
  Receive Date: 20200716
  Receipt Date: 20200716
  Transmission Date: 20201103
  Serious: Yes (Hospitalization)
  Sender: FDA-Public Use
  Company Number: ES-MYLANLABS-2020M1064399

PATIENT
  Age: 53 Year
  Sex: Female

DRUGS (7)
  1. TOPOTECAN [Suspect]
     Active Substance: TOPOTECAN HYDROCHLORIDE
     Indication: SQUAMOUS CELL CARCINOMA OF THE CERVIX
     Dosage: 0.75 MILLIGRAM/SQ. METER, FIRST?LINE TREATMENT FOR SIX CYCLES; CUMULATIVE DOSE WAS 21MG
     Route: 065
     Dates: start: 201102, end: 201105
  2. CARBOPLATIN. [Suspect]
     Active Substance: CARBOPLATIN
     Dosage: AREA UNDER CURVE OF 5; 4 CYCLES; 4080 MG TOTAL ..
     Route: 065
     Dates: start: 201401, end: 201404
  3. PACLITAXEL. [Suspect]
     Active Substance: PACLITAXEL
     Dosage: 175 MILLIGRAM/SQ. METER, EIGHT CYCLES; 2100 MG TOTAL ACCUMULATED ...
     Route: 065
     Dates: start: 201210, end: 201308
  4. MYOCET                             /00330902/ [Suspect]
     Active Substance: DOXORUBICIN HYDROCHLORIDE
     Indication: SQUAMOUS CELL CARCINOMA OF THE CERVIX
     Dosage: 60 MILLIGRAM/SQ. METER, 4 CYCLES
     Route: 065
     Dates: start: 201401, end: 201404
  5. CARBOPLATIN. [Suspect]
     Active Substance: CARBOPLATIN
     Indication: SQUAMOUS CELL CARCINOMA OF THE CERVIX
     Dosage: AREA UNDER CURVE 6; EIGHT CYCLES
     Route: 065
     Dates: start: 201210, end: 201308
  6. CISPLATIN. [Suspect]
     Active Substance: CISPLATIN
     Indication: SQUAMOUS CELL CARCINOMA OF THE CERVIX
     Dosage: 50 MILLIGRAM/SQ. METER, FIRST?LINE TREATMENT FOR SIX CYCLES; CUMULATIVE DOSE WAS 477MG
     Route: 065
     Dates: start: 201102, end: 201105
  7. PACLITAXEL. [Suspect]
     Active Substance: PACLITAXEL
     Indication: SQUAMOUS CELL CARCINOMA OF THE CERVIX
     Dosage: 75 MILLIGRAM/SQ. METER, QW
     Route: 065
     Dates: start: 201110, end: 201207

REACTIONS (1)
  - Acute myeloid leukaemia [Unknown]
